FAERS Safety Report 11597793 (Version 1)
Quarter: 2015Q3

REPORT INFORMATION
  Report Type: Spontaneous
  Country: US (occurrence: US)
  Receive Date: 20150916
  Receipt Date: 20150916
  Transmission Date: 20151125
  Serious: No
  Sender: FDA-Public Use
  Company Number: US-ELI_LILLY_AND_COMPANY-US200801001348

PATIENT
  Age: 54 Year
  Sex: Female

DRUGS (2)
  1. CALCIUM [Concomitant]
     Active Substance: CALCIUM
     Dosage: 500 MG, UNK
  2. FORTEO [Suspect]
     Active Substance: TERIPARATIDE

REACTIONS (4)
  - Injection site erythema [Recovering/Resolving]
  - Dysgeusia [Unknown]
  - Injection site urticaria [Recovered/Resolved]
  - Injection site haemorrhage [Recovered/Resolved]

NARRATIVE: CASE EVENT DATE: 20080106
